FAERS Safety Report 5705532-1 (Version None)
Quarter: 2008Q2

REPORT INFORMATION
  Report Type: 
  Country: None (occurrence: None)
  Receive Date: 20080415
  Receipt Date: 20080403
  Transmission Date: 20081010
  Serious: Yes (Other)
  Sender: FDA-Public Use
  Company Number: PL-ROCHE-557284

PATIENT
  Sex: Female
  Weight: 52 kg

DRUGS (6)
  1. BONIVA [Suspect]
     Indication: OSTEOPOROSIS POSTMENOPAUSAL
     Route: 048
     Dates: start: 20071023
  2. FAMOGAST [Concomitant]
     Dosage: DOSE: 1 X 1 DOSE FORM
     Route: 048
     Dates: start: 20040831
  3. DEBRIDAT [Concomitant]
     Indication: IRRITABLE BOWEL SYNDROME
     Dosage: DOSE: 3 X 1
     Route: 048
  4. SECTRAL [Concomitant]
     Dosage: DOSE: 2 X 1/2
     Route: 048
  5. TIALORID [Concomitant]
     Dosage: DOSE: 1 X 1
     Route: 048
  6. TIALORID [Concomitant]
     Dosage: DOSE: 1 X 1
     Route: 048

REACTIONS (3)
  - CALCINOSIS [None]
  - PNEUMONITIS [None]
  - PULMONARY CALCIFICATION [None]
